FAERS Safety Report 21403564 (Version 2)
Quarter: 2022Q4

REPORT INFORMATION
  Report Type: Report from Study
  Country: US (occurrence: US)
  Receive Date: 20221003
  Receipt Date: 20221027
  Transmission Date: 20230113
  Serious: Yes (Hospitalization, Other)
  Sender: FDA-Public Use
  Company Number: US-BoehringerIngelheim-2022-BI-170431

PATIENT
  Age: 82 Year
  Sex: Male

DRUGS (3)
  1. OFEV [Suspect]
     Active Substance: NINTEDANIB
     Indication: Idiopathic pulmonary fibrosis
     Route: 048
     Dates: start: 20220430, end: 20220807
  2. OFEV [Suspect]
     Active Substance: NINTEDANIB
     Indication: Interstitial lung disease
     Route: 048
     Dates: start: 202208, end: 20220816
  3. OFEV [Suspect]
     Active Substance: NINTEDANIB
     Indication: Diarrhoea

REACTIONS (12)
  - Heart valve replacement [Recovering/Resolving]
  - Coronary artery bypass [Recovered/Resolved]
  - Cardiac operation [Not Recovered/Not Resolved]
  - Ulcer haemorrhage [Recovering/Resolving]
  - Haematochezia [Recovered/Resolved]
  - Asthenia [Recovering/Resolving]
  - Dysstasia [Recovering/Resolving]
  - Diarrhoea [Recovered/Resolved]
  - Diarrhoea [Recovered/Resolved]
  - Headache [Recovered/Resolved]
  - Sleep disorder [Not Recovered/Not Resolved]
  - Intentional product use issue [Unknown]

NARRATIVE: CASE EVENT DATE: 20220601
